FAERS Safety Report 18162201 (Version 1)
Quarter: 2020Q3

REPORT INFORMATION
  Report Type: Spontaneous
  Country: US (occurrence: US)
  Receive Date: 20200817
  Receipt Date: 20200817
  Transmission Date: 20201103
  Serious: Yes (Life-Threatening)
  Sender: FDA-Public Use
  Company Number: None

PATIENT
  Age: 75 Year
  Sex: Female

DRUGS (1)
  1. TOPROL XL [Suspect]
     Active Substance: METOPROLOL SUCCINATE
     Indication: ATRIAL FIBRILLATION
     Dates: start: 20200810, end: 20200817

REACTIONS (3)
  - Product dispensing error [None]
  - Heart rate increased [None]
  - Wrong product administered [None]

NARRATIVE: CASE EVENT DATE: 20200817
